FAERS Safety Report 7767426-X (Version None)
Quarter: 2011Q3

REPORT INFORMATION
  Report Type: 
  Country: None (occurrence: None)
  Receive Date: 20110922
  Receipt Date: 20100809
  Transmission Date: 20111222
  Serious: No
  Sender: FDA-Public Use
  Company Number: US-ASTRAZENECA-2010SE37319

PATIENT
  Sex: Male
  Weight: 90.7 kg

DRUGS (8)
  1. FOLIC ACID [Concomitant]
  2. SEROQUEL [Suspect]
     Indication: PSYCHOTIC DISORDER
     Route: 048
  3. DILANTIN [Concomitant]
     Indication: CONVULSION
  4. EMLODAPINE [Concomitant]
     Indication: HYPERTENSION
  5. LISINOPRIL [Concomitant]
  6. GABAPENTIN [Concomitant]
  7. OCCUVITE [Concomitant]
     Indication: MACULAR DEGENERATION
     Dosage: UNKNOWN DOSE DAILY
  8. HYDROCODONE [Concomitant]
     Indication: PAIN
     Dosage: 7/75 DAILY

REACTIONS (3)
  - AGGRESSION [None]
  - INSOMNIA [None]
  - DRUG DOSE OMISSION [None]
